FAERS Safety Report 10096504 (Version 3)
Quarter: 2015Q1

REPORT INFORMATION
  Report Type: Spontaneous
  Country: US (occurrence: US)
  Receive Date: 20140422
  Receipt Date: 20150108
  Transmission Date: 20150720
  Serious: Yes (Hospitalization, Other)
  Sender: FDA-Public Use
  Company Number: US-BAYER-2014-057650

PATIENT
  Age: 15 Year
  Sex: Female
  Weight: 51 kg

DRUGS (2)
  1. YAZ [Suspect]
     Active Substance: DROSPIRENONE\ETHINYL ESTRADIOL
     Dosage: UNK
     Dates: start: 2006, end: 2007
  2. IBUPROFEN. [Concomitant]
     Active Substance: IBUPROFEN
     Dosage: 400 MG, PR, 1 EVERY 6 TO 8 HRS
     Dates: start: 20070222

REACTIONS (6)
  - Deep vein thrombosis [None]
  - Pain [Recovered/Resolved]
  - Cerebrovascular accident [None]
  - Injury [Recovered/Resolved]
  - Pulmonary embolism [Recovered/Resolved]
  - Thrombosis [None]

NARRATIVE: CASE EVENT DATE: 200703
